FAERS Safety Report 4486707-9 (Version None)
Quarter: 2004Q4

REPORT INFORMATION
  Report Type: 
  Country: None (occurrence: None)
  Receive Date: 20041021
  Receipt Date: 20040930
  Transmission Date: 20050328
  Serious: Yes (Other)
  Sender: FDA-Public Use
  Company Number: EWC041040929

PATIENT
  Age: 86 Year
  Sex: Female

DRUGS (1)
  1. FORTEO [Suspect]
     Indication: OSTEOPOROSIS
     Dosage: 20 UG/1 DAY
     Dates: start: 20040315

REACTIONS (5)
  - ARTHRALGIA [None]
  - CALCINOSIS [None]
  - POST PROCEDURAL COMPLICATION [None]
  - PROSTHESIS IMPLANTATION [None]
  - SOFT TISSUE DISORDER [None]
